FAERS Safety Report 14787308 (Version 2)
Quarter: 2018Q2

REPORT INFORMATION
  Report Type: Spontaneous
  Country: US (occurrence: US)
  Receive Date: 20180421
  Receipt Date: 20180619
  Transmission Date: 20180711
  Serious: Yes (Other)
  Sender: FDA-Public Use
  Company Number: US-AUROBINDO-AUR-APL-2018-020626

PATIENT
  Age: 28 Year
  Sex: Male

DRUGS (2)
  1. RISPERIDONE. [Suspect]
     Active Substance: RISPERIDONE
     Indication: TOURETTE^S DISORDER
     Dosage: 0.5 MILLIGRAM, ONCE A DAY
     Route: 065
  2. RISPERIDONE. [Suspect]
     Active Substance: RISPERIDONE
     Indication: OBSESSIVE-COMPULSIVE DISORDER
     Dosage: 1 MILLIGRAM, ONCE A DAY
     Route: 065

REACTIONS (4)
  - Blood creatine phosphokinase increased [Recovered/Resolved]
  - Muscular weakness [Recovered/Resolved]
  - Respiratory muscle weakness [Recovered/Resolved]
  - Myopathy toxic [Recovering/Resolving]
